FAERS Safety Report 13700485 (Version 1)
Quarter: 2017Q2

REPORT INFORMATION
  Report Type: Spontaneous
  Country: DE (occurrence: DE)
  Receive Date: 20170629
  Receipt Date: 20170629
  Transmission Date: 20170830
  Serious: Yes (Other)
  Sender: FDA-Public Use
  Company Number: DE-ACCORD-053000

PATIENT
  Age: 42 Year
  Sex: Male

DRUGS (3)
  1. OXALIPLATIN. [Suspect]
     Active Substance: OXALIPLATIN
     Indication: OESOPHAGEAL CANCER METASTATIC
  2. FLUOROURACIL. [Suspect]
     Active Substance: FLUOROURACIL
     Indication: OESOPHAGEAL CANCER METASTATIC
  3. DOCETAXEL. [Suspect]
     Active Substance: DOCETAXEL
     Indication: OESOPHAGEAL CANCER METASTATIC

REACTIONS (2)
  - Paraneoplastic pemphigus [Recovered/Resolved with Sequelae]
  - Off label use [Unknown]
